FAERS Safety Report 5442421-4 (Version None)
Quarter: 2007Q3

REPORT INFORMATION
  Report Type: 
  Country: None (occurrence: None)
  Receive Date: 20070904
  Receipt Date: 20070823
  Transmission Date: 20080115
  Serious: Yes (Death, Other)
  Sender: FDA-Public Use
  Company Number: FR-PFIZER INC-2007070962

PATIENT
  Age: 82 Year
  Sex: Female

DRUGS (4)
  1. LYRICA [Suspect]
     Indication: NEURALGIA
     Dates: start: 20070101, end: 20070101
  2. NEURONTIN [Suspect]
     Indication: NEURALGIA
     Dates: start: 20070101, end: 20070101
  3. LOVENOX [Concomitant]
  4. CARDIOVASCULAR SYSTEM DRUGS [Concomitant]

REACTIONS (6)
  - ABDOMINAL PAIN UPPER [None]
  - CEREBROVASCULAR ACCIDENT [None]
  - EMBOLISM [None]
  - FALL [None]
  - MALAISE [None]
  - NAUSEA [None]
